FAERS Safety Report 17164808 (Version 4)
Quarter: 2020Q1

REPORT INFORMATION
  Report Type: Spontaneous
  Country: JP (occurrence: JP)
  Receive Date: 20191217
  Receipt Date: 20200221
  Transmission Date: 20200409
  Serious: Yes (Hospitalization, Other)
  Sender: FDA-Public Use
  Company Number: JP-009507513-1912JPN000789J

PATIENT
  Age: 78 Year
  Sex: Male
  Weight: 56 kg

DRUGS (4)
  1. MAGNESIUM HYDROXIDE. [Concomitant]
     Active Substance: MAGNESIUM HYDROXIDE
     Dosage: UNK
     Route: 065
  2. ZYLORIC [Concomitant]
     Active Substance: ALLOPURINOL
     Dosage: UNK
     Route: 065
  3. MUCOSOLVAN L [Concomitant]
     Active Substance: AMBROXOL HYDROCHLORIDE
     Dosage: UNK
     Route: 065
  4. KEYTRUDA [Suspect]
     Active Substance: PEMBROLIZUMAB
     Indication: NON-SMALL CELL LUNG CANCER
     Dosage: 200 MILLIGRAM, Q3W
     Route: 041
     Dates: start: 20191008, end: 20191119

REACTIONS (5)
  - Encephalitis [Recovering/Resolving]
  - Fall [Recovering/Resolving]
  - Colitis [Unknown]
  - Electroencephalogram abnormal [Recovering/Resolving]
  - Meningitis [Recovering/Resolving]

NARRATIVE: CASE EVENT DATE: 2019
